FAERS Safety Report 18842857 (Version 3)
Quarter: 2021Q2

REPORT INFORMATION
  Report Type: Spontaneous
  Country: US (occurrence: US)
  Receive Date: 20210204
  Receipt Date: 20210625
  Transmission Date: 20210717
  Serious: No
  Sender: FDA-Public Use
  Company Number: US-LUPIN PHARMACEUTICALS INC.-2021-01105

PATIENT
  Age: 76 Year
  Sex: Female

DRUGS (2)
  1. ALBUTEROL SULFATE INHALATION AEROSOL [Suspect]
     Active Substance: ALBUTEROL SULFATE
     Indication: BRONCHOSPASM
     Dosage: UNK
  2. ALBUTEROL SULFATE INHALATION AEROSOL [Suspect]
     Active Substance: ALBUTEROL SULFATE
     Dosage: UNK

REACTIONS (6)
  - Wrong technique in product usage process [Unknown]
  - Device ineffective [Unknown]
  - No adverse event [Unknown]
  - Device defective [Unknown]
  - Device maintenance issue [Unknown]
  - Device delivery system issue [Unknown]
